FAERS Safety Report 23569471 (Version 2)
Quarter: 2024Q2

REPORT INFORMATION
  Report Type: Spontaneous
  Country: ES (occurrence: ES)
  Receive Date: 20240227
  Receipt Date: 20240408
  Transmission Date: 20240716
  Serious: Yes (Hospitalization, Other)
  Sender: FDA-Public Use
  Company Number: ES-ASTELLAS-2024EU001650

PATIENT
  Age: 64 Year
  Sex: Male

DRUGS (3)
  1. TACROLIMUS [Suspect]
     Active Substance: TACROLIMUS
     Indication: Heart transplant
     Dosage: 8 MG, ONCE DAILY (1 TABLET 5 MG + 3 TABLETS 1 MG) AT LEAST 30 MINUTES BEFORE BREAKFAST
     Route: 065
     Dates: start: 20220627
  2. MYCOPHENOLATE MOFETIL [Concomitant]
     Active Substance: MYCOPHENOLATE MOFETIL
     Indication: Heart transplant
     Dosage: UNK UNK, UNKNOWN FREQ.
     Route: 065
  3. PREDNISONE [Concomitant]
     Active Substance: PREDNISONE
     Indication: Heart transplant
     Dosage: UNK UNK, UNKNOWN FREQ.
     Route: 065

REACTIONS (7)
  - Cardiac tamponade [Recovered/Resolved]
  - Osteomyelitis fungal [Recovered/Resolved]
  - Aspergillus infection [Recovered/Resolved]
  - COVID-19 pneumonia [Recovered/Resolved]
  - Bacterial pericarditis [Recovered/Resolved]
  - Cutibacterium acnes infection [Recovered/Resolved]
  - Pericardial effusion [Recovered/Resolved]

NARRATIVE: CASE EVENT DATE: 20221101
